FAERS Safety Report 14330349 (Version 1)
Quarter: 2017Q4

REPORT INFORMATION
  Report Type: Spontaneous
  Country: GB (occurrence: GB)
  Receive Date: 20171227
  Receipt Date: 20171227
  Transmission Date: 20180321
  Serious: Yes (Other)
  Sender: FDA-Public Use
  Company Number: PHHY2017GB190615

PATIENT
  Age: 14 Year
  Sex: Female
  Weight: 40.65 kg

DRUGS (6)
  1. TRANEXAMIC ACID. [Concomitant]
     Active Substance: TRANEXAMIC ACID
     Indication: MENORRHAGIA
  2. ELTROMBOPAG [Suspect]
     Active Substance: ELTROMBOPAG
     Indication: PRODUCT USED FOR UNKNOWN INDICATION
     Dosage: UNK
     Route: 065
  3. PENICILLIN V [Concomitant]
     Active Substance: PENICILLIN V
     Indication: PROPHYLAXIS
     Dosage: 250 MG, BID (JAN/ FEB 2015)
     Route: 048
     Dates: start: 2015
  4. TRANEXAMIC ACID. [Concomitant]
     Active Substance: TRANEXAMIC ACID
     Indication: THROMBOCYTOPENIA
     Dosage: 750 MG, TID (WITH PERIODS)
     Route: 048
  5. COTRIMOXAZOLE [Concomitant]
     Active Substance: SULFAMETHOXAZOLE\TRIMETHOPRIM
     Indication: PROPHYLAXIS
     Dosage: 480 MG, BID (JAN/FEB 2015)
     Route: 048
     Dates: start: 2015, end: 20171107
  6. ITRACONAZOLE. [Concomitant]
     Active Substance: ITRACONAZOLE
     Indication: PROPHYLAXIS
     Dosage: 95 MG, BID
     Route: 048
     Dates: start: 201501, end: 20171205

REACTIONS (5)
  - Anxiety [Not Recovered/Not Resolved]
  - Herpes zoster [Recovered/Resolved]
  - Intentional self-injury [Unknown]
  - Full blood count decreased [Unknown]
  - Depressed mood [Unknown]

NARRATIVE: CASE EVENT DATE: 20170906
